FAERS Safety Report 22600749 (Version 1)
Quarter: 2023Q2

REPORT INFORMATION
  Report Type: Spontaneous
  Country: US (occurrence: None)
  Receive Date: 20230613
  Receipt Date: 20230613
  Transmission Date: 20230722
  Serious: Yes (Hospitalization)
  Sender: FDA-Public Use
  Company Number: None

PATIENT
  Sex: Female

DRUGS (5)
  1. NUCALA [Suspect]
     Active Substance: MEPOLIZUMAB
     Indication: Asthma
     Dosage: OTHER QUANTITY : 100 MG/ML ;?OTHER FREQUENCY : EVERY 30 DAYS;?
     Route: 058
     Dates: start: 20221216
  2. NUCALA [Suspect]
     Active Substance: MEPOLIZUMAB
     Dosage: OTHER QUANTITY : 100MG (1 PEN);?OTHER FREQUENCY : EVERY 30 DAYS;?
     Route: 058
  3. ALLEGRA [Concomitant]
     Active Substance: FEXOFENADINE HYDROCHLORIDE
  4. CALCIUM [Concomitant]
  5. PREDNISONE [Concomitant]

REACTIONS (2)
  - Asthma [None]
  - Impaired quality of life [None]
